FAERS Safety Report 17706661 (Version 2)
Quarter: 2021Q3

REPORT INFORMATION
  Report Type: Spontaneous
  Country: CA (occurrence: CA)
  Receive Date: 20200424
  Receipt Date: 20210831
  Transmission Date: 20211014
  Serious: Yes (Hospitalization)
  Sender: FDA-Public Use
  Company Number: CA-OTSUKA-2020_010393

PATIENT
  Age: 30 Year
  Sex: Female

DRUGS (1)
  1. ABILIFY MAINTENA [Suspect]
     Active Substance: ARIPIPRAZOLE
     Indication: DELUSION
     Dosage: UNK, QM
     Route: 030
     Dates: end: 20191020

REACTIONS (9)
  - Abnormal behaviour [Unknown]
  - Suicidal ideation [Unknown]
  - Vaginal infection [Unknown]
  - Gambling [Unknown]
  - Disorganised speech [Unknown]
  - Psychomotor hyperactivity [Unknown]
  - Hypersexuality [Unknown]
  - Delusion [Unknown]
  - Product use in unapproved indication [Unknown]
